FAERS Safety Report 4477794-2 (Version None)
Quarter: 2004Q4

REPORT INFORMATION
  Report Type: 
  Country: None (occurrence: None)
  Receive Date: 20041014
  Receipt Date: 20040922
  Transmission Date: 20050328
  Serious: Yes (Other)
  Sender: FDA-Public Use
  Company Number: RB-944-2004

PATIENT
  Age: 27 Year
  Sex: Female

DRUGS (2)
  1. BUPRENORPHINE HCL [Suspect]
     Indication: DRUG DEPENDENCE
     Dosage: 4 MG SL
     Route: 060
     Dates: start: 20040410, end: 20040913
  2. MAGNESIUM VERLA DRAGEES [Concomitant]

REACTIONS (9)
  - ABORTION SPONTANEOUS [None]
  - CHORIOAMNIONITIS [None]
  - CORYNEBACTERIUM INFECTION [None]
  - DRUG EXPOSURE DURING PREGNANCY [None]
  - HYPERTROPHY [None]
  - OLIGOHYDRAMNIOS [None]
  - PLACENTAL DISORDER [None]
  - RETROPLACENTAL HAEMATOMA [None]
  - STAPHYLOCOCCAL INFECTION [None]
